FAERS Safety Report 8464767-8 (Version None)
Quarter: 2012Q2

REPORT INFORMATION
  Report Type: 
  Country: None (occurrence: None)
  Receive Date: 20120626
  Receipt Date: 20120615
  Transmission Date: 20120825
  Serious: Yes (Other)
  Sender: FDA-Public Use
  Company Number: JP-VERTEX PHARMACEUTICALS INC.-AE-2012-006243

PATIENT
  Age: 71 Year
  Sex: Female

DRUGS (15)
  1. RIBAVIRIN [Concomitant]
     Route: 048
     Dates: start: 20120405, end: 20120411
  2. URSO 250 [Concomitant]
     Route: 048
     Dates: end: 20120405
  3. PROHEPARUM [Concomitant]
     Route: 048
     Dates: end: 20120405
  4. AMLODIPINE [Concomitant]
     Route: 048
     Dates: end: 20120425
  5. JANUVIA [Concomitant]
     Route: 048
  6. ALLOPURINOL [Concomitant]
     Route: 048
     Dates: start: 20120316
  7. RIBAVIRIN [Concomitant]
     Indication: HEPATITIS C
     Route: 048
     Dates: start: 20120308, end: 20120404
  8. PEGINTERFERON ALFA-2B [Concomitant]
     Route: 058
     Dates: start: 20120322
  9. AMLODIPINE [Concomitant]
     Route: 048
     Dates: start: 20120426
  10. PEGINTERFERON ALFA-2B [Concomitant]
     Indication: HEPATITIS C
     Route: 058
     Dates: start: 20120308, end: 20120314
  11. TELAVIC (TELAPREVIR) [Suspect]
     Route: 048
     Dates: start: 20120517, end: 20120530
  12. XYZAL [Concomitant]
     Route: 048
  13. TELAVIC (TELAPREVIR) [Suspect]
     Indication: HEPATITIS C
     Route: 048
     Dates: start: 20120308, end: 20120516
  14. RIBAVIRIN [Concomitant]
     Route: 048
     Dates: start: 20120412, end: 20120502
  15. PEGINTERFERON ALFA-2B [Concomitant]
     Route: 058
     Dates: start: 20120315, end: 20120321

REACTIONS (1)
  - DELIRIUM [None]
